FAERS Safety Report 17236319 (Version 1)
Quarter: 2020Q1

REPORT INFORMATION
  Report Type: Spontaneous
  Country: AU (occurrence: AU)
  Receive Date: 20200106
  Receipt Date: 20200106
  Transmission Date: 20200409
  Serious: Yes (Other)
  Sender: FDA-Public Use
  Company Number: AU-PFIZER INC-2019553641

PATIENT
  Sex: Male

DRUGS (6)
  1. ATACAND [Interacting]
     Active Substance: CANDESARTAN CILEXETIL
     Dosage: UNK
  2. LYRICA [Suspect]
     Active Substance: PREGABALIN
     Dosage: 75 MG, DAILY
  3. WARFARIN [Interacting]
     Active Substance: WARFARIN
     Dosage: UNK
  4. ZYLOPRIM [Concomitant]
     Active Substance: ALLOPURINOL
     Indication: GOUT
  5. LYRICA [Suspect]
     Active Substance: PREGABALIN
     Indication: PAIN
     Dosage: 25 MG, DAILY
  6. LIPITOR [Suspect]
     Active Substance: ATORVASTATIN CALCIUM
     Dosage: UNK

REACTIONS (15)
  - Off label use [Unknown]
  - Urinary incontinence [Unknown]
  - Product use in unapproved indication [Unknown]
  - Paralysis [Unknown]
  - Mastication disorder [Unknown]
  - Myalgia [Unknown]
  - Drug interaction [Unknown]
  - Nervous system disorder [Unknown]
  - Hypertension [Unknown]
  - Dysstasia [Unknown]
  - Renal disorder [Unknown]
  - Nausea [Unknown]
  - Constipation [Unknown]
  - Drug ineffective [Unknown]
  - Intentional product misuse [Unknown]
